FAERS Safety Report 6132269-X (Version None)
Quarter: 2009Q1

REPORT INFORMATION
  Report Type: 
  Country: None (occurrence: None)
  Receive Date: 20090320
  Receipt Date: 20081029
  Transmission Date: 20090719
  Serious: No
  Sender: FDA-Public Use
  Company Number: US-CVT-080095

PATIENT
  Age: 75 Year
  Sex: Male
  Weight: 106.1 kg

DRUGS (18)
  1. RANEXA [Suspect]
     Indication: ANGINA PECTORIS
     Dosage: 500 MG, BID, ORAL
     Route: 048
     Dates: start: 20081013
  2. CARVEDILOL [Concomitant]
  3. GLYBURIDE [Concomitant]
  4. METFORMIN HCL [Concomitant]
  5. LIPITOR [Concomitant]
  6. WELCHOL [Concomitant]
  7. FUROSEMIDE [Concomitant]
  8. ISOSORBIDE (ISOSORBIDE) [Concomitant]
  9. RAMIPRIL [Concomitant]
  10. OMEPRAZOLE [Concomitant]
  11. SPIRONOLACTONE [Concomitant]
  12. METOLAZONE [Concomitant]
  13. COUMADIN [Concomitant]
  14. LANTUS [Concomitant]
  15. HUMALOG [Concomitant]
  16. IRON (IRON) [Concomitant]
  17. MAGNESIUM (MAGNESIUM HYDROXIDE) [Concomitant]
  18. OXYGEN (OXYGEN) [Concomitant]

REACTIONS (1)
  - BLOOD GLUCOSE INCREASED [None]
